FAERS Safety Report 5366690-4 (Version None)
Quarter: 2007Q2

REPORT INFORMATION
  Report Type: 
  Country: None (occurrence: None)
  Receive Date: 20070622
  Receipt Date: 20070612
  Transmission Date: 20071010
  Serious: Yes (Other)
  Sender: FDA-Public Use
  Company Number: BR-ASTRAZENECA-2007UW13064

PATIENT
  Age: 40 Year
  Sex: Female
  Weight: 81 kg

DRUGS (1)
  1. ZOLADEX [Suspect]
     Indication: ENDOMETRIOSIS
     Route: 058
     Dates: start: 20061217, end: 20070217

REACTIONS (5)
  - AMENORRHOEA [None]
  - ANXIETY [None]
  - INCREASED APPETITE [None]
  - MOOD ALTERED [None]
  - WEIGHT INCREASED [None]
